FAERS Safety Report 5110894-2 (Version None)
Quarter: 2006Q3

REPORT INFORMATION
  Report Type: 
  Country: None (occurrence: None)
  Receive Date: 20060919
  Receipt Date: 20060906
  Transmission Date: 20061208
  Serious: Yes (Hospitalization)
  Sender: FDA-Public Use
  Company Number: JP-2006-024365

PATIENT
  Age: 34 Year
  Sex: Female
  Weight: 60 kg

DRUGS (7)
  1. BETAFERON (INTERFERON BETA - 1B) INJECTION, 250UG [Suspect]
     Indication: MULTIPLE SCLEROSIS
     Dosage: SEE IMAGE
     Route: 058
     Dates: start: 20021209, end: 20030427
  2. BETAFERON (INTERFERON BETA - 1B) INJECTION, 250UG [Suspect]
     Indication: MULTIPLE SCLEROSIS
     Dosage: SEE IMAGE
     Route: 058
     Dates: start: 20040527, end: 20040916
  3. BETAFERON (INTERFERON BETA - 1B) INJECTION, 250UG [Suspect]
     Indication: MULTIPLE SCLEROSIS
     Dosage: SEE IMAGE
     Route: 058
     Dates: start: 20040917, end: 20060803
  4. LIORESAL TABLET [Concomitant]
  5. RIVOTRIL (CLONAZEPAM) GRANULES [Concomitant]
  6. METHYCOBAL (MECOBALAMIN) TABLET [Concomitant]
  7. JUVELA NICOTINATE (TOCOPHERYL NICOTINATE) CAPSULE [Concomitant]

REACTIONS (7)
  - ANTI-THYROID ANTIBODY POSITIVE [None]
  - GOITRE [None]
  - HEMIPLEGIA [None]
  - HEPATIC FUNCTION ABNORMAL [None]
  - INTERSTITIAL LUNG DISEASE [None]
  - MULTIPLE SCLEROSIS RELAPSE [None]
  - NECK PAIN [None]
